FAERS Safety Report 23917504 (Version 4)
Quarter: 2024Q4

REPORT INFORMATION
  Report Type: Spontaneous
  Country: JP (occurrence: JP)
  Receive Date: 20240529
  Receipt Date: 20241112
  Transmission Date: 20250115
  Serious: Yes (Death, Life-Threatening, Other)
  Sender: ELI LILLY AND COMPANY
  Company Number: JP-ELI_LILLY_AND_COMPANY-JP202405013577

PATIENT
  Age: 57 Year
  Sex: Female
  Weight: 38 kg

DRUGS (3)
  1. NECITUMUMAB [Suspect]
     Active Substance: NECITUMUMAB
     Indication: Squamous cell carcinoma of lung
     Dosage: 800 MG, UNKNOWN
     Route: 041
     Dates: start: 20240509, end: 20240606
  2. GEMCITABINE HYDROCHLORIDE [Suspect]
     Active Substance: GEMCITABINE HYDROCHLORIDE
     Indication: Squamous cell carcinoma of lung
     Dosage: 1300 MG, UNKNOWN
     Route: 041
     Dates: start: 20240509, end: 20240606
  3. CISPLATIN [Suspect]
     Active Substance: CISPLATIN
     Indication: Squamous cell carcinoma of lung
     Dosage: 97.5 MG, UNKNOWN
     Route: 041
     Dates: start: 20240509, end: 20240606

REACTIONS (4)
  - Malignant neoplasm progression [Fatal]
  - Cardiac tamponade [Recovering/Resolving]
  - Vascular pain [Unknown]
  - Rash [Recovered/Resolved]

NARRATIVE: CASE EVENT DATE: 20240514
